FAERS Safety Report 5329944-3 (Version None)
Quarter: 2007Q2

REPORT INFORMATION
  Report Type: 
  Country: None (occurrence: None)
  Receive Date: 20070517
  Receipt Date: 20070517
  Transmission Date: 20071010
  Serious: Yes (Hospitalization)
  Sender: FDA-Public Use
  Company Number: None

PATIENT
  Sex: Female
  Weight: 75 kg

DRUGS (6)
  1. ROFERON-A [Suspect]
     Indication: COLON CANCER
     Dosage: 6 MILLION IU,SQ,X6 TOTA
     Dates: start: 20040430
  2. ROFERON-A [Suspect]
     Indication: COLON CANCER
     Dosage: 6 MILLION IU,SQ,X6 TOTA
     Dates: start: 20070407
  3. ROFERON-A [Suspect]
     Indication: COLON CANCER
     Dosage: 6 MILLION IU,SQ,X6 TOTA
     Dates: start: 20070424
  4. ROFERON-A [Suspect]
     Indication: COLON CANCER
     Dosage: 6 MILLION IU,SQ,X6 TOTA
     Dates: start: 20070426
  5. ROFERON-A [Suspect]
     Indication: COLON CANCER
     Dosage: 6 MILLION IU,SQ,X6 TOTA
     Dates: start: 20070428
  6. ROFERON-A [Suspect]
     Indication: COLON CANCER
     Dosage: 6 MILLION IU,SQ,X6 TOTA
     Dates: start: 20070502

REACTIONS (7)
  - ANOREXIA [None]
  - ASTHENIA [None]
  - DEHYDRATION [None]
  - DIARRHOEA [None]
  - FATIGUE [None]
  - NAUSEA [None]
  - VOMITING [None]
